FAERS Safety Report 17419679 (Version 2)
Quarter: 2020Q1

REPORT INFORMATION
  Report Type: Report from Study
  Country: None (occurrence: DE)
  Receive Date: 20200214
  Receipt Date: 20200302
  Transmission Date: 20200409
  Serious: Yes (Life-Threatening, Hospitalization, Other)
  Sender: FDA-Public Use
  Company Number: DE-ABBVIE-20K-062-3275671-00

PATIENT
  Age: 40 Year
  Sex: Female

DRUGS (2)
  1. INFERAX [Suspect]
     Active Substance: INTERFERON ALFACON-1
     Indication: HEPATITIS C
     Dosage: DOSE: 9 MCG QD, DURATION: CONTINUING
     Route: 058
     Dates: start: 200310
  2. RIBAVIRIN. [Suspect]
     Active Substance: RIBAVIRIN
     Indication: HEPATITIS C
     Dosage: DOSE: 800 MG QD, DURATION: CONTINUING
     Route: 048
     Dates: start: 200310

REACTIONS (4)
  - Subarachnoid haemorrhage [Recovered/Resolved]
  - Seizure [Recovered/Resolved]
  - Fall [Unknown]
  - Extradural haematoma [Recovered/Resolved]

NARRATIVE: CASE EVENT DATE: 20040110
